FAERS Safety Report 16820561 (Version 1)
Quarter: 2019Q3

REPORT INFORMATION
  Report Type: Spontaneous
  Country: US (occurrence: US)
  Receive Date: 20190918
  Receipt Date: 20190918
  Transmission Date: 20191005
  Serious: Yes (Hospitalization)
  Sender: FDA-Public Use
  Company Number: US-STRIDES ARCOLAB LIMITED-2019SP008750

PATIENT
  Age: 44 Year
  Sex: Male

DRUGS (2)
  1. VANCOMYCIN [Suspect]
     Active Substance: VANCOMYCIN
     Indication: OSTEOMYELITIS
     Dosage: UNK
     Route: 042
  2. DOXYCYCLINE. [Suspect]
     Active Substance: DOXYCYCLINE
     Indication: OSTEOMYELITIS
     Dosage: 100 MG, EVERY 12 HRS, (FIRST DOSE GIVEN EVENING OF OPERATIVE DAY)
     Route: 048

REACTIONS (7)
  - Pruritus [Unknown]
  - Acute generalised exanthematous pustulosis [Unknown]
  - Lymphadenopathy [Unknown]
  - Pain [Unknown]
  - Rash morbilliform [Unknown]
  - Rash pustular [Unknown]
  - Rash erythematous [Unknown]
